FAERS Safety Report 18677332 (Version 1)
Quarter: 2020Q4

REPORT INFORMATION
  Report Type: Spontaneous
  Country: DE (occurrence: DE)
  Receive Date: 20201229
  Receipt Date: 20201229
  Transmission Date: 20210114
  Serious: Yes (Other)
  Sender: FDA-Public Use
  Company Number: DE-MYLANLABS-2020M1104394

PATIENT
  Age: 70 Year
  Sex: Male
  Weight: 75 kg

DRUGS (8)
  1. CANDESARTAN. [Concomitant]
     Active Substance: CANDESARTAN
     Indication: HYPERTENSION
     Dosage: 30 YEARS AGO; 1 DOSE
     Route: 048
  2. NOVOPULMON [Concomitant]
     Active Substance: BUDESONIDE
     Indication: ASTHMA
     Dosage: 30 YEARS AGO; 2 PUFFS IN MORNING AND 2 PUFFS IN EVENING
  3. ELIQUIS [Concomitant]
     Active Substance: APIXABAN
     Indication: ATRIAL FIBRILLATION
     Dosage: 1-0-1
     Route: 048
  4. NOVOPULMON [Concomitant]
     Active Substance: BUDESONIDE
     Indication: CHRONIC OBSTRUCTIVE PULMONARY DISEASE
  5. FORMATRIS NOVOLIZER [Suspect]
     Active Substance: FORMOTEROL FUMARATE
     Indication: CHRONIC OBSTRUCTIVE PULMONARY DISEASE
  6. NEBIVOLOL. [Concomitant]
     Active Substance: NEBIVOLOL
     Indication: HYPERTENSION
     Dosage: 30 YEARS AGO; 0.5 DOSE
     Route: 048
  7. MOMETASON [Concomitant]
     Active Substance: MOMETASONE FUROATE
     Dosage: 50 MICROGRAM/PUFF; 1 PUFF IN MORNING AND 1 PUFF IN EVENING
     Route: 045
  8. FORMATRIS NOVOLIZER [Suspect]
     Active Substance: FORMOTEROL FUMARATE
     Indication: ASTHMA
     Dosage: 30 YEARS AGO; 2 PUFFS IN MORNING AND 2 PUFFS IN EVENING

REACTIONS (4)
  - Drug ineffective [Unknown]
  - Device issue [Unknown]
  - Throat tightness [Unknown]
  - Acute respiratory distress syndrome [Unknown]

NARRATIVE: CASE EVENT DATE: 202011
